FAERS Safety Report 7090480-8 (Version None)
Quarter: 2010Q4

REPORT INFORMATION
  Report Type: 
  Country: None (occurrence: None)
  Receive Date: 20101109
  Receipt Date: 20101026
  Transmission Date: 20110411
  Serious: Yes (Death)
  Sender: FDA-Public Use
  Company Number: US-BAYER-201039573NA

PATIENT
  Age: 21 Year
  Sex: Female
  Weight: 65 kg

DRUGS (3)
  1. YASMIN [Suspect]
     Indication: MENSTRUAL CYCLE MANAGEMENT
     Route: 048
     Dates: start: 20040101, end: 20090101
  2. OCELLA [Suspect]
     Indication: MENSTRUAL CYCLE MANAGEMENT
     Dates: start: 20040101, end: 20090101
  3. IMODIUM [Concomitant]
     Indication: DIARRHOEA
     Dosage: 1 TABLET
     Dates: start: 20090606

REACTIONS (1)
  - ARRHYTHMIA [None]
